FAERS Safety Report 12619028 (Version 1)
Quarter: 2016Q3

REPORT INFORMATION
  Report Type: Spontaneous
  Country: JP (occurrence: JP)
  Receive Date: 20160803
  Receipt Date: 20160803
  Transmission Date: 20161109
  Serious: Yes (Death, Hospitalization)
  Sender: FDA-Public Use
  Company Number: JP-ABBVIE-16P-087-1671402-00

PATIENT
  Age: 75 Year
  Sex: Female

DRUGS (1)
  1. VIEKIRAX [Suspect]
     Active Substance: OMBITASVIR\PARITAPREVIR\RITONAVIR
     Indication: HEPATITIS C
     Route: 048
     Dates: start: 20160602

REACTIONS (2)
  - Blood bilirubin increased [Recovering/Resolving]
  - Acute kidney injury [Fatal]

NARRATIVE: CASE EVENT DATE: 20160605
